FAERS Safety Report 4812103-8 (Version None)
Quarter: 2005Q4

REPORT INFORMATION
  Report Type: 
  Country: None (occurrence: None)
  Receive Date: 20051028
  Receipt Date: 20031124
  Transmission Date: 20060501
  Serious: No
  Sender: FDA-Public Use
  Company Number: US-GLAXOSMITHKLINE-A0441010A

PATIENT
  Age: 67 Year
  Sex: Female

DRUGS (5)
  1. ADVAIR DISKUS 100/50 [Suspect]
     Indication: ASTHMA
     Dosage: 1PUFF TWICE PER DAY
     Route: 055
     Dates: start: 20011101
  2. ALBUTEROL [Concomitant]
  3. SINGULAIR [Concomitant]
  4. ZYRTEC [Concomitant]
  5. NEXIUM [Concomitant]

REACTIONS (11)
  - AGITATION [None]
  - ALOPECIA [None]
  - ASTHMA [None]
  - CONFUSIONAL STATE [None]
  - COUGH [None]
  - DIZZINESS [None]
  - DYSPNOEA [None]
  - FALL [None]
  - IRRITABILITY [None]
  - PHARMACEUTICAL PRODUCT COMPLAINT [None]
  - TREMOR [None]
